FAERS Safety Report 18921844 (Version 1)
Quarter: 2021Q1

REPORT INFORMATION
  Report Type: Spontaneous
  Country: US (occurrence: US)
  Receive Date: 20210219
  Receipt Date: 20210219
  Transmission Date: 20210420
  Serious: No
  Sender: FDA-Public Use
  Company Number: None

PATIENT
  Age: 69 Year
  Sex: Male
  Weight: 127.01 kg

DRUGS (4)
  1. ESZOPICLONE 3MG [Suspect]
     Active Substance: ESZOPICLONE
     Indication: INSOMNIA
     Dosage: ?          QUANTITY:1 AT BEDTIME;OTHER FREQUENCY:AS NEEED/BEDTIME;?
     Route: 048
     Dates: start: 20210216, end: 20210219
  2. NO DRUG NAME [Concomitant]
  3. KLONOPIN [Concomitant]
     Active Substance: CLONAZEPAM
  4. PROVIOIT [Concomitant]

REACTIONS (3)
  - Drug ineffective [None]
  - Insurance issue [None]
  - Product substitution issue [None]

NARRATIVE: CASE EVENT DATE: 20210216
